FAERS Safety Report 4281921-X (Version None)
Quarter: 2004Q1

REPORT INFORMATION
  Report Type: 
  Country: None (occurrence: None)
  Receive Date: 20040128
  Receipt Date: 20040121
  Transmission Date: 20041129
  Serious: Yes (Death)
  Sender: FDA-Public Use
  Company Number: USA-2004-0012542

PATIENT
  Age: 47 Year
  Sex: Male
  Weight: 95.2 kg

DRUGS (3)
  1. OXYCODONE HCL [Suspect]
  2. COCAINE (COCAINE) [Suspect]
  3. ETHANOL(ETHANOL) [Suspect]

REACTIONS (12)
  - ACCIDENTAL OVERDOSE [None]
  - ALCOHOLISM [None]
  - CARDIOMEGALY [None]
  - CORONARY ARTERY ATHEROSCLEROSIS [None]
  - DRUG TOXICITY [None]
  - FIBROSIS [None]
  - HEPATIC STEATOSIS [None]
  - HEPATOMEGALY [None]
  - MULTIPLE DRUG OVERDOSE [None]
  - PLEURAL ADHESION [None]
  - POLYSUBSTANCE ABUSE [None]
  - PULMONARY CONGESTION [None]
